FAERS Safety Report 19077795 (Version 1)
Quarter: 2021Q1

REPORT INFORMATION
  Report Type: Report from Study
  Country: DE (occurrence: DE)
  Receive Date: 20210331
  Receipt Date: 20210331
  Transmission Date: 20210420
  Serious: Yes (Hospitalization)
  Sender: FDA-Public Use
  Company Number: DE-BRISTOL-MYERS SQUIBB COMPANY-BMS-2021-023936

PATIENT
  Age: 40 Year
  Sex: Male
  Weight: 83.7 kg

DRUGS (6)
  1. LEUCOVORIN CALCIUM. [Suspect]
     Active Substance: LEUCOVORIN CALCIUM
     Indication: OESOPHAGEAL CARCINOMA
     Dosage: 788 MILLIGRAM
     Route: 065
     Dates: start: 20201202, end: 20201230
  2. IPILIMUMAB [Suspect]
     Active Substance: IPILIMUMAB
     Indication: OESOPHAGEAL CARCINOMA
     Dosage: 83 MILLIGRAM
     Route: 065
     Dates: start: 20210113, end: 20210224
  3. FLUOROURACIL. [Suspect]
     Active Substance: FLUOROURACIL
     Indication: OESOPHAGEAL CARCINOMA
     Dosage: 788 MILLIGRAM
     Route: 065
     Dates: start: 20201202, end: 20201230
  4. FLUOROURACIL. [Suspect]
     Active Substance: FLUOROURACIL
     Dosage: 4730 MILLIGRAM
     Dates: end: 20201230
  5. NIVOLUMAB [Suspect]
     Active Substance: NIVOLUMAB
     Indication: OESOPHAGEAL CARCINOMA
     Dosage: 240 MILLIGRAM
     Route: 065
     Dates: start: 20210113, end: 20210224
  6. OXALIPLATIN. [Suspect]
     Active Substance: OXALIPLATIN
     Indication: OESOPHAGEAL CARCINOMA
     Dosage: 167 MILLIGRAM
     Dates: start: 20201202, end: 20201230

REACTIONS (1)
  - Lymphadenopathy [Recovering/Resolving]

NARRATIVE: CASE EVENT DATE: 20210308
